FAERS Safety Report 9392132 (Version 5)
Quarter: 2013Q3

REPORT INFORMATION
  Report Type: Spontaneous
  Country: JP (occurrence: JP)
  Receive Date: 20130709
  Receipt Date: 20130925
  Transmission Date: 20140515
  Serious: Yes (Life-Threatening)
  Sender: FDA-Public Use
  Company Number: JP-CELGENEUS-087-21660-13070369

PATIENT
  Age: 61 Year
  Sex: Female
  Weight: 54 kg

DRUGS (13)
  1. ABRAXANE [Suspect]
     Indication: NON-SMALL CELL LUNG CANCER
     Dosage: 120 MILLIGRAM
     Route: 041
     Dates: start: 20130426, end: 20130426
  2. PARAPLATIN [Suspect]
     Indication: NON-SMALL CELL LUNG CANCER
     Dosage: 700 MILLIGRAM
     Route: 041
     Dates: start: 20130426, end: 20130426
  3. ZOSYN [Suspect]
     Indication: PROPHYLAXIS
     Dosage: 18 GRAM
     Route: 041
     Dates: start: 20130314, end: 20130322
  4. GENINAX [Concomitant]
     Indication: PRODUCT USED FOR UNKNOWN INDICATION
     Route: 048
     Dates: start: 20130326
  5. FLUID [Concomitant]
     Indication: PRODUCT USED FOR UNKNOWN INDICATION
     Route: 065
     Dates: start: 20130501
  6. LACBON [Concomitant]
     Indication: DIARRHOEA
     Dosage: 3 GRAM
     Route: 065
     Dates: start: 20130503
  7. PRIMPERAN [Concomitant]
     Indication: NAUSEA
     Dosage: 15 MILLIGRAM
     Route: 048
     Dates: start: 20130430, end: 20130502
  8. PRIMPERAN [Concomitant]
     Dosage: 10 MILLIGRAM
     Route: 041
     Dates: start: 20130501, end: 20130503
  9. DECADRON [Concomitant]
     Indication: PRODUCT USED FOR UNKNOWN INDICATION
     Dosage: 6.6 MILLIGRAM
     Route: 041
     Dates: start: 20130426, end: 20130426
  10. DECADRON [Concomitant]
     Dosage: 8 MILLIGRAM
     Route: 048
     Dates: start: 20130427, end: 20130428
  11. PURSENNID [Concomitant]
     Indication: PRODUCT USED FOR UNKNOWN INDICATION
     Dosage: 24 MILLIGRAM
     Route: 048
     Dates: start: 20130427, end: 20130428
  12. ALOXI [Concomitant]
     Indication: PRODUCT USED FOR UNKNOWN INDICATION
     Dosage: .75 MILLIGRAM
     Route: 041
     Dates: start: 20130426, end: 20130426
  13. SOLDEM 3A [Concomitant]
     Indication: PRODUCT USED FOR UNKNOWN INDICATION
     Dosage: 500 MILLILITER
     Route: 041
     Dates: start: 20130501, end: 20130501

REACTIONS (1)
  - Pseudomembranous colitis [Recovering/Resolving]
